FAERS Safety Report 8326134-7 (Version None)
Quarter: 2012Q2

REPORT INFORMATION
  Report Type: 
  Country: None (occurrence: None)
  Receive Date: 20120501
  Receipt Date: 20100628
  Transmission Date: 20120825
  Serious: No
  Sender: FDA-Public Use
  Company Number: US-TEVA-2010003171

PATIENT
  Age: 57 Year
  Sex: Male
  Weight: 84.898 kg

DRUGS (2)
  1. PRISTIQ [Suspect]
     Dates: start: 20100519, end: 20100523
  2. NUVIGIL [Suspect]
     Route: 048
     Dates: start: 20100515, end: 20100526

REACTIONS (1)
  - RASH [None]
